FAERS Safety Report 6156706-X (Version None)
Quarter: 2009Q2

REPORT INFORMATION
  Report Type: 
  Country: None (occurrence: None)
  Receive Date: 20090416
  Receipt Date: 20090403
  Transmission Date: 20091009
  Serious: Yes (Other)
  Sender: FDA-Public Use
  Company Number: BR-JNJFOC-20090401563

PATIENT
  Age: 74 Year
  Sex: Male
  Weight: 40.37 kg

DRUGS (2)
  1. ACETAMINOPHEN W/ CODEINE [Suspect]
     Indication: BACK PAIN
     Route: 065
  2. PROFENID [Concomitant]
     Indication: BACK PAIN
     Dosage: 3 TABLETS TAKEN
     Route: 065

REACTIONS (3)
  - ANURIA [None]
  - DELIRIUM [None]
  - HALLUCINATION [None]
